FAERS Safety Report 5994857-0 (Version None)
Quarter: 2008Q4

REPORT INFORMATION
  Report Type: 
  Country: None (occurrence: None)
  Receive Date: 20081212
  Receipt Date: 20080916
  Transmission Date: 20090506
  Serious: No
  Sender: FDA-Public Use
  Company Number: US-ABBOTT-08P-163-0476762-00

PATIENT
  Sex: Male
  Weight: 95.34 kg

DRUGS (7)
  1. HUMIRA [Suspect]
     Indication: ANKYLOSING SPONDYLITIS
     Route: 058
     Dates: start: 20080726, end: 20080801
  2. HUMIRA [Suspect]
     Route: 058
     Dates: start: 20080823
  3. NAPROXEN [Concomitant]
     Indication: PAIN
     Route: 048
  4. OMEPRAZOLE MAGNESIUM [Concomitant]
     Indication: ANTACID THERAPY
     Route: 048
  5. SIMVASTATIN [Concomitant]
     Indication: BLOOD CHOLESTEROL INCREASED
     Route: 048
  6. VITAMINS [Concomitant]
     Indication: ROUTINE HEALTH MAINTENANCE
     Route: 048
  7. VICODIN [Concomitant]
     Indication: PAIN
     Route: 048

REACTIONS (2)
  - CHEST PAIN [None]
  - DRUG INEFFECTIVE [None]
